FAERS Safety Report 9915166 (Version 1)
Quarter: 2014Q1

REPORT INFORMATION
  Report Type: Report from Study
  Country: DE (occurrence: DE)
  Receive Date: 20140220
  Receipt Date: 20140220
  Transmission Date: 20141002
  Serious: Yes (Death, Life-Threatening, Hospitalization, Disabling)
  Sender: FDA-Public Use
  Company Number: DE-ASTRAZENECA-2014SE10789

PATIENT
  Age: 77 Year
  Sex: Male

DRUGS (10)
  1. TICAGRELOR [Suspect]
     Indication: ACUTE CORONARY SYNDROME
     Route: 048
     Dates: start: 20131015
  2. ASPIRIN [Suspect]
     Indication: ACUTE CORONARY SYNDROME
     Route: 065
     Dates: start: 20131015
  3. RAMIPRIL [Concomitant]
     Dosage: 5/25 MG
  4. BISOPROLOL [Concomitant]
  5. AMLODIPIN [Concomitant]
  6. TOREM [Concomitant]
  7. PANTOZOL [Concomitant]
  8. LOCOL [Concomitant]
  9. TILIDIN [Concomitant]
     Dosage: 50/5 MG AS REQUIRED
  10. ALLOPURINOL [Concomitant]

REACTIONS (1)
  - Cardiac tamponade [Fatal]
